FAERS Safety Report 8633843 (Version 2)
Quarter: 2013Q2

REPORT INFORMATION
  Report Type: Spontaneous
  Country: FR (occurrence: FR)
  Receive Date: 20120625
  Receipt Date: 20130621
  Transmission Date: 20140414
  Serious: Yes (Hospitalization)
  Sender: FDA-Public Use
  Company Number: PHHY2012FR053743

PATIENT
  Age: 76 Year
  Sex: Female

DRUGS (12)
  1. CUBICIN [Suspect]
     Indication: OSTEOMYELITIS
     Dosage: 700 MG, QD
     Route: 042
     Dates: start: 20120502, end: 20120516
  2. CUBICIN [Suspect]
     Dosage: 500 MG, DAILY
  3. ESIDREX [Suspect]
     Dosage: 12.5 MG, QD
     Route: 048
     Dates: start: 20120418, end: 20120504
  4. VANCOMYCIN [Suspect]
     Indication: OSTEOMYELITIS
     Dosage: 2 G, QD
     Route: 042
     Dates: start: 20120427, end: 20120502
  5. CIPROXAN [Suspect]
  6. FUROSEMIDE [Suspect]
     Dosage: 20 MG, UNK
     Route: 042
     Dates: start: 20120427, end: 20120501
  7. RIFADINE [Suspect]
     Indication: OSTEOMYELITIS
     Dosage: UNK
     Route: 048
     Dates: start: 20120502, end: 20120516
  8. HYZAAR [Concomitant]
  9. IPERTEN [Concomitant]
  10. KARDEGIC [Concomitant]
  11. GENTALLINE [Concomitant]
  12. ORBENINE [Concomitant]

REACTIONS (13)
  - Sepsis [Unknown]
  - Infection [Unknown]
  - Interstitial lung disease [Unknown]
  - Pleural effusion [Unknown]
  - Gastrointestinal haemorrhage [Unknown]
  - Anaemia [Unknown]
  - Melaena [Unknown]
  - Pleural disorder [Unknown]
  - Blood creatine increased [Unknown]
  - Hypokalaemia [Recovered/Resolved]
  - Electrocardiogram T wave amplitude decreased [Recovered/Resolved]
  - Toxicity to various agents [None]
  - Blood sodium decreased [None]
